FAERS Safety Report 10587088 (Version 6)
Quarter: 2015Q1

REPORT INFORMATION
  Report Type: Spontaneous
  Country: BR (occurrence: BR)
  Receive Date: 20141117
  Receipt Date: 20150210
  Transmission Date: 20150720
  Serious: Yes (Death, Hospitalization, Other)
  Sender: FDA-Public Use
  Company Number: BR-PFIZER INC-2014273599

PATIENT
  Age: 60 Year
  Sex: Female
  Weight: 49.5 kg

DRUGS (5)
  1. CONCARDIO [Concomitant]
     Active Substance: BISOPROLOL FUMARATE
     Indication: BLOOD PRESSURE ABNORMAL
     Dosage: 2.5 MG, 1X/DAY
  2. HYDROCHLOROTHIAZIDE/LOSARTAN [Concomitant]
     Dosage: UNK, STRENGTH 50/12.5 MG
  3. BENICAR [Concomitant]
     Active Substance: OLMESARTAN MEDOXOMIL
     Indication: BLOOD PRESSURE ABNORMAL
     Dosage: 20/12.5 MG, 1X/DAY
  4. SUTENT [Suspect]
     Active Substance: SUNITINIB MALATE
     Indication: RENAL CELL CARCINOMA
     Dosage: 50 MG, CYCLIC (ONCE DAILY, 2X1)
     Route: 048
     Dates: start: 20140512
  5. PANTOPRAZOLE [Concomitant]
     Active Substance: PANTOPRAZOLE SODIUM
     Indication: GASTRIC DISORDER
     Dosage: 40 MG, 1X/DAY

REACTIONS (15)
  - Large intestinal ulcer [Unknown]
  - Therapeutic response unexpected [Unknown]
  - Hand dermatitis [Recovering/Resolving]
  - Skin disorder [Unknown]
  - Haemoglobin abnormal [Unknown]
  - Haematochezia [Unknown]
  - Blister [Recovering/Resolving]
  - Disease progression [Unknown]
  - Nausea [Not Recovered/Not Resolved]
  - Death [Fatal]
  - Dry skin [Recovering/Resolving]
  - Renal cell carcinoma [Unknown]
  - Abdominal pain [Unknown]
  - Asthenia [Unknown]
  - Hyperkeratosis [Recovering/Resolving]

NARRATIVE: CASE EVENT DATE: 2014
